FAERS Safety Report 13170292 (Version 1)
Quarter: 2017Q1

REPORT INFORMATION
  Report Type: Spontaneous
  Country: GB (occurrence: GB)
  Receive Date: 20170131
  Receipt Date: 20170131
  Transmission Date: 20170428
  Serious: Yes (Hospitalization)
  Sender: FDA-Public Use
  Company Number: GB-009507513-1701GBR013015

PATIENT
  Age: 90 Year
  Sex: Female

DRUGS (11)
  1. MORPHINE [Concomitant]
     Active Substance: MORPHINE
  2. CODEINE [Concomitant]
     Active Substance: CODEINE
  3. FUROSEMIDE. [Suspect]
     Active Substance: FUROSEMIDE
     Indication: OEDEMA
     Dosage: INCREASED TO 40MG TWICE DAILY
     Route: 048
     Dates: start: 20161028
  4. PARACETAMOL [Concomitant]
     Active Substance: ACETAMINOPHEN
  5. TIOTROPIUM [Concomitant]
     Active Substance: TIOTROPIUM
  6. MIRTAZAPINE. [Suspect]
     Active Substance: MIRTAZAPINE
     Indication: DEPRESSED MOOD
     Dosage: NCREASED TO TOTAL OF 45MG FROM AUGUST TO JANUARY
     Route: 048
     Dates: start: 20160825, end: 20170116
  7. FOLIC ACID. [Concomitant]
     Active Substance: FOLIC ACID
  8. SIMVASTATIN. [Concomitant]
     Active Substance: SIMVASTATIN
  9. WARFARIN [Concomitant]
     Active Substance: WARFARIN
  10. CARBOCYSTEINE [Concomitant]
     Active Substance: CARBOCYSTEINE
  11. LORAZEPAM. [Concomitant]
     Active Substance: LORAZEPAM

REACTIONS (1)
  - Hyponatraemia [Recovering/Resolving]

NARRATIVE: CASE EVENT DATE: 20161230
